FAERS Safety Report 9303945 (Version 1)
Quarter: 2013Q2

REPORT INFORMATION
  Report Type: Spontaneous
  Country: US (occurrence: US)
  Receive Date: 20130522
  Receipt Date: 20130522
  Transmission Date: 20140414
  Serious: Yes (Other)
  Sender: FDA-Public Use
  Company Number: US-ACTAVIS-2013-08564

PATIENT
  Age: 57 Year
  Sex: Male

DRUGS (1)
  1. GLIBENCLAMIDE (UNKNOWN) [Suspect]
     Indication: INTENTIONAL DRUG MISUSE
     Dosage: UNK
     Route: 048

REACTIONS (4)
  - Coma [Recovered/Resolved]
  - Mental status changes [Recovered/Resolved]
  - Hypoglycaemia [Recovered/Resolved]
  - Intentional drug misuse [Unknown]
